FAERS Safety Report 9671032 (Version 2)
Quarter: 2013Q4

REPORT INFORMATION
  Report Type: Spontaneous
  Country: US (occurrence: US)
  Receive Date: 20131106
  Receipt Date: 20131113
  Transmission Date: 20140711
  Serious: No
  Sender: FDA-Public Use
  Company Number: US-BAYER-2013-134464

PATIENT
  Age: 57 Year
  Sex: Male
  Weight: 91 kg

DRUGS (2)
  1. ALEVE CAPLET [Suspect]
     Indication: PAIN
     Route: 048
  2. ALEVE CAPLET [Suspect]
     Indication: PAIN
     Dosage: 10 IN A 14 HOUR PERIOD
     Route: 048

REACTIONS (2)
  - Drug ineffective [None]
  - Extra dose administered [None]
